FAERS Safety Report 8932669 (Version 1)
Quarter: 2012Q4

REPORT INFORMATION
  Report Type: Spontaneous
  Country: US (occurrence: None)
  Receive Date: 20121126
  Receipt Date: 20121126
  Transmission Date: 20130627
  Serious: No
  Sender: FDA-Public Use
  Company Number: None

PATIENT
  Sex: Female

DRUGS (1)
  1. EQUATE BRAND 1 HOUR INTENSE TECH WHITENING SYSTEM [Suspect]

REACTIONS (4)
  - Drug hypersensitivity [None]
  - Chemical injury [None]
  - Pain [None]
  - Skin exfoliation [None]
